FAERS Safety Report 15468114 (Version 2)
Quarter: 2018Q4

REPORT INFORMATION
  Report Type: Spontaneous
  Country: BE (occurrence: BE)
  Receive Date: 20181005
  Receipt Date: 20181129
  Transmission Date: 20190204
  Serious: Yes (Other)
  Sender: FDA-Public Use
  Company Number: BE-ACCORD-072950

PATIENT
  Age: 46 Year
  Sex: Female

DRUGS (3)
  1. DOXORUBICIN [Interacting]
     Active Substance: DOXORUBICIN
     Indication: PERITONEAL MESOTHELIOMA MALIGNANT
     Route: 033
  2. PEMETREXED/PEMETREXED DISODIUM [Concomitant]
  3. CISPLATIN. [Suspect]
     Active Substance: CISPLATIN
     Indication: PERITONEAL MESOTHELIOMA MALIGNANT
     Route: 033

REACTIONS (3)
  - Off label use [Unknown]
  - Drug interaction [Unknown]
  - Acute respiratory distress syndrome [Unknown]
